FAERS Safety Report 9644683 (Version 1)
Quarter: 2013Q4

REPORT INFORMATION
  Report Type: Spontaneous
  Country: US (occurrence: US)
  Receive Date: 20131025
  Receipt Date: 20131025
  Transmission Date: 20140711
  Serious: Yes (Hospitalization)
  Sender: FDA-Public Use
  Company Number: US-BAYER-2013-127996

PATIENT
  Age: 44 Year
  Sex: Female

DRUGS (3)
  1. YAZ [Suspect]
  2. HYDROCODONE [Concomitant]
     Dosage: 5/325 MG, AS NEEDED
     Dates: start: 20100713
  3. ROXANOL [Concomitant]
     Dosage: UNK
     Dates: start: 20100720

REACTIONS (2)
  - Deep vein thrombosis [None]
  - Thrombophlebitis superficial [None]
